FAERS Safety Report 5748893-X (Version None)
Quarter: 2008Q2

REPORT INFORMATION
  Report Type: 
  Country: None (occurrence: None)
  Receive Date: 20080522
  Receipt Date: 20080516
  Transmission Date: 20081010
  Serious: Yes (Death)
  Sender: FDA-Public Use
  Company Number: CO-JNJFOC-20080502900

PATIENT
  Age: 56 Year
  Sex: Female

DRUGS (5)
  1. DECITABINE (DECITABINE) LYOPHILIZED POWDER [Suspect]
     Indication: CHRONIC MYELOMONOCYTIC LEUKAEMIA
     Dosage: 37 MG, INTRAVENOUS
     Route: 042
     Dates: start: 20080315, end: 20080319
  2. CAPTOPRIL [Concomitant]
  3. AMIODARONE HCL [Concomitant]
  4. OMEPRAZOLE [Concomitant]
  5. PLATELET TRANSFUSION (PLATELETS, HUMAN BLOOD) [Concomitant]

REACTIONS (6)
  - ACUTE RESPIRATORY DISTRESS SYNDROME [None]
  - FEBRILE NEUTROPENIA [None]
  - GENERAL PHYSICAL HEALTH DETERIORATION [None]
  - MULTI-ORGAN FAILURE [None]
  - SHOCK [None]
  - URINARY TRACT INFECTION [None]
